FAERS Safety Report 6596680-5 (Version None)
Quarter: 2010Q1

REPORT INFORMATION
  Report Type: 
  Country: None (occurrence: None)
  Receive Date: 20100223
  Receipt Date: 20100211
  Transmission Date: 20100710
  Serious: Yes (Other)
  Sender: FDA-Public Use
  Company Number: GB-PFIZER INC-2009288789

PATIENT
  Age: 62 Year
  Sex: Female
  Weight: 70 kg

DRUGS (8)
  1. SUNITINIB MALATE [Suspect]
     Indication: RENAL CANCER
     Dosage: 50 MG, 1X/DAY
     Route: 048
     Dates: start: 20090825, end: 20091001
  2. ASPIRIN [Concomitant]
     Dosage: 75 MG, UNK
     Route: 048
  3. CITALOPRAM [Concomitant]
     Dosage: 20 MG, UNK
     Route: 048
  4. DOXAZOSIN [Concomitant]
     Dosage: 4 MG, UNK
     Route: 048
  5. FERROUS SULFATE TAB [Concomitant]
     Dosage: 200 MG, UNK
     Route: 048
  6. PRAVASTATIN [Concomitant]
     Dosage: 40 MG, UNK
     Route: 048
  7. PROPRANOLOL [Concomitant]
     Dosage: 160 MG, UNK
     Route: 048
  8. RAMIPRIL [Concomitant]
     Dosage: 10 MG, UNK
     Route: 048

REACTIONS (9)
  - CHROMATURIA [None]
  - COORDINATION ABNORMAL [None]
  - DYSKINESIA [None]
  - HEADACHE [None]
  - MUSCLE SPASMS [None]
  - MUSCULAR WEAKNESS [None]
  - REVERSIBLE POSTERIOR LEUKOENCEPHALOPATHY SYNDROME [None]
  - VISUAL IMPAIRMENT [None]
  - YELLOW SKIN [None]
